FAERS Safety Report 8621613-7 (Version None)
Quarter: 2012Q3

REPORT INFORMATION
  Report Type: 
  Country: None (occurrence: None)
  Receive Date: 20120820
  Receipt Date: 20120820
  Transmission Date: 20120928
  Serious: Yes (Hospitalization)
  Sender: FDA-Public Use
  Company Number: None

PATIENT
  Sex: Female
  Weight: 70.4 kg

DRUGS (5)
  1. RITUXAN [Suspect]
     Dosage: 650 MG
  2. DOXORUBICIN HYDROCHLORIDE [Suspect]
     Dosage: 86 MG
  3. CYCLOPHOSPHAMIDE [Suspect]
     Dosage: 1280 MG
  4. PREDNISONE [Suspect]
     Dosage: 70 MG
  5. VINCRISTINE SULFATE [Suspect]
     Dosage: 2 MG

REACTIONS (3)
  - DYSPNOEA [None]
  - MOVEMENT DISORDER [None]
  - LOCAL SWELLING [None]
